FAERS Safety Report 8215590-0 (Version None)
Quarter: 2012Q1

REPORT INFORMATION
  Report Type: 
  Country: None (occurrence: None)
  Receive Date: 20120316
  Receipt Date: 20120305
  Transmission Date: 20120608
  Serious: Yes (Hospitalization)
  Sender: FDA-Public Use
  Company Number: FR-ROCHE-1048273

PATIENT
  Sex: Male
  Weight: 90.074 kg

DRUGS (4)
  1. XOLAIR [Suspect]
     Indication: ASTHMA
     Route: 058
     Dates: start: 20100501
  2. BRICANYL [Concomitant]
  3. SYMBICORT [Concomitant]
     Dates: start: 20100101
  4. ATROVENT [Concomitant]

REACTIONS (1)
  - ACUTE CORONARY SYNDROME [None]
